FAERS Safety Report 21207444 (Version 6)
Quarter: 2024Q2

REPORT INFORMATION
  Report Type: Spontaneous
  Country: CA (occurrence: CA)
  Receive Date: 20220812
  Receipt Date: 20240530
  Transmission Date: 20240715
  Serious: Yes (Hospitalization, Other)
  Sender: FDA-Public Use
  Company Number: CA-BAYER-2022A109815

PATIENT
  Age: 53 Year
  Sex: Female

DRUGS (36)
  1. ESTRADIOL HEMIHYDRATE [Suspect]
     Active Substance: ESTRADIOL HEMIHYDRATE
     Indication: Product used for unknown indication
     Dosage: 50 MG, QD
     Route: 062
     Dates: end: 200903
  2. PROGESTERONE [Suspect]
     Active Substance: PROGESTERONE
     Indication: Product used for unknown indication
     Dosage: 100 MG, QD
     Route: 048
     Dates: end: 200903
  3. LORAZEPAM [Suspect]
     Active Substance: LORAZEPAM
     Indication: Product used for unknown indication
     Dosage: 1 MG, QD
     Route: 048
     Dates: end: 200903
  4. BUDESONIDE\FORMOTEROL FUMARATE [Suspect]
     Active Substance: BUDESONIDE\FORMOTEROL FUMARATE
     Indication: Product used for unknown indication
     Dosage: 1 DF, BID
     Route: 048
  5. BUDESONIDE\FORMOTEROL FUMARATE [Suspect]
     Active Substance: BUDESONIDE\FORMOTEROL FUMARATE
     Indication: Product used for unknown indication
     Dosage: 2 MG
  6. BUDESONIDE\FORMOTEROL FUMARATE [Suspect]
     Active Substance: BUDESONIDE\FORMOTEROL FUMARATE
     Indication: Product used for unknown indication
     Dosage: 6 MG, BID
  7. BUDESONIDE\FORMOTEROL FUMARATE [Suspect]
     Active Substance: BUDESONIDE\FORMOTEROL FUMARATE
     Indication: Product used for unknown indication
     Dosage: 200 MG, BID
  8. BUDESONIDE\FORMOTEROL FUMARATE [Suspect]
     Active Substance: BUDESONIDE\FORMOTEROL FUMARATE
     Indication: Product used for unknown indication
     Dosage: EVERY 5 DAY
  9. VARENICLINE [Suspect]
     Active Substance: VARENICLINE
     Indication: Product used for unknown indication
     Dosage: 0.5 MG, QD
  10. VARENICLINE [Suspect]
     Active Substance: VARENICLINE
     Indication: Product used for unknown indication
     Dosage: 150 MG
     Route: 065
  11. VENLAFAXINE [Suspect]
     Active Substance: VENLAFAXINE HYDROCHLORIDE
     Indication: Product used for unknown indication
     Dosage: 150 MG, UNK
  12. DIETARY SUPPLEMENT\PROBIOTICS [Suspect]
     Active Substance: DIETARY SUPPLEMENT\PROBIOTICS NOS
     Dosage: 1 DF, TID
     Route: 048
  13. LINOLEIC ACID, CONJUGATED [Suspect]
     Active Substance: LINOLEIC ACID, CONJUGATED
     Indication: Product used for unknown indication
     Dosage: 1 DF, TID
     Route: 048
  14. SOMATROPIN [Suspect]
     Active Substance: SOMATROPIN
     Indication: Product used for unknown indication
     Dosage: UNK
     Route: 062
  15. DIMETHYL SULFONE [Suspect]
     Active Substance: DIMETHYL SULFONE
     Indication: Product used for unknown indication
     Dosage: 1000 MG, TID
     Route: 048
  16. VITAMINS NOS [Suspect]
     Active Substance: VITAMINS
     Indication: Product used for unknown indication
     Dosage: 1 DF, BID
     Route: 048
  17. FISH OIL [Suspect]
     Active Substance: FISH OIL
     Indication: Product used for unknown indication
     Dosage: 1 DF, BID
     Route: 048
  18. VITAMIN D NOS [Suspect]
     Active Substance: CHOLECALCIFEROL\ERGOCALCIFEROL
     Dosage: 1000 IU, QD
     Route: 048
  19. ERGOCALCIFEROL [Suspect]
     Active Substance: ERGOCALCIFEROL
     Indication: Product used for unknown indication
     Dosage: 1000 IU, QD
     Route: 048
  20. PROMETRIUM [Suspect]
     Active Substance: PROGESTERONE
     Indication: Product used for unknown indication
     Route: 048
  21. ICOSAPENT [Suspect]
     Active Substance: ICOSAPENT
     Indication: Product used for unknown indication
     Dosage: 180 MG, BID
     Route: 048
  22. DOCONEXENT [Suspect]
     Active Substance: DOCONEXENT
     Indication: Product used for unknown indication
     Dosage: 120 MG, BID
     Route: 048
  23. UBIDECARENONE [Suspect]
     Active Substance: UBIDECARENONE
     Indication: Product used for unknown indication
     Dosage: 3.75 MG
     Route: 048
  24. .ALPHA.-TOCOPHEROL [Suspect]
     Active Substance: .ALPHA.-TOCOPHEROL
     Indication: Product used for unknown indication
     Route: 048
  25. VITAMIN C [Suspect]
     Active Substance: ASCORBIC ACID
     Indication: Product used for unknown indication
     Dosage: 15 MG, BID
     Route: 048
  26. RETINOL [Suspect]
     Active Substance: RETINOL
     Indication: Product used for unknown indication
     Dosage: 188 MG, BID
     Route: 048
  27. THIOCTIC ACID [Suspect]
     Active Substance: THIOCTIC ACID
     Indication: Product used for unknown indication
     Dosage: 3.75 MG, QD
  28. .ALPHA.-TOCOPHEROL, D- [Suspect]
     Active Substance: .ALPHA.-TOCOPHEROL, D-
     Indication: Product used for unknown indication
     Dosage: 7.5 MG
     Route: 048
  29. BIFIDOBACTERIUM LONGUM [Suspect]
     Active Substance: BIFIDOBACTERIUM LONGUM
     Indication: Product used for unknown indication
     Route: 048
  30. ALCOHOL [Suspect]
     Active Substance: ALCOHOL
     Indication: Product used for unknown indication
  31. FISH OIL [Suspect]
     Active Substance: FISH OIL
     Indication: Product used for unknown indication
     Dosage: UNK UNK, BID
     Route: 048
  32. LACTOBACILLUS ACIDOPHILUS [Suspect]
     Active Substance: LACTOBACILLUS ACIDOPHILUS
     Indication: Product used for unknown indication
     Dosage: UNK, TID
     Route: 048
  33. DIETARY SUPPLEMENT\PROBIOTICS [Suspect]
     Active Substance: DIETARY SUPPLEMENT\PROBIOTICS NOS
     Indication: Product used for unknown indication
     Dosage: UNK
     Route: 048
  34. DIMETHYL SULFONE [Suspect]
     Active Substance: DIMETHYL SULFONE
     Indication: Product used for unknown indication
     Dosage: 1000 MG
  35. ARBONNE NUTRIMIN C RE9 REALITY SPF 8 DAY CREME [Suspect]
     Active Substance: OCTINOXATE\OXYBENZONE
     Indication: Product used for unknown indication
     Dosage: 2 DF, BID
     Route: 048
  36. FISH OIL [Suspect]
     Active Substance: FISH OIL
     Indication: Product used for unknown indication
     Dosage: EVERY 5 DAY

REACTIONS (6)
  - Drug-induced liver injury [Unknown]
  - Hepatic cirrhosis [Unknown]
  - Hepatic encephalopathy [Unknown]
  - Hepatic necrosis [Unknown]
  - Hepatotoxicity [Recovering/Resolving]
  - Drug interaction [Recovering/Resolving]
